FAERS Safety Report 7579982-5 (Version None)
Quarter: 2011Q2

REPORT INFORMATION
  Report Type: 
  Country: None (occurrence: None)
  Receive Date: 20110629
  Receipt Date: 20110620
  Transmission Date: 20111010
  Serious: No
  Sender: FDA-Public Use
  Company Number: US-JNJFOC-20110609520

PATIENT
  Age: 23 Year
  Sex: Male
  Weight: 45.36 kg

DRUGS (5)
  1. COGENTIN [Concomitant]
     Route: 065
  2. INVEGA SUSTENNA [Suspect]
     Indication: SCHIZOPHRENIA
     Route: 030
     Dates: start: 20110615
  3. PAXIL [Concomitant]
     Indication: SCHIZOPHRENIA
     Route: 065
  4. ZYPREXA ZYDIS [Concomitant]
     Indication: SCHIZOPHRENIA
     Dosage: AT BED TIME
     Route: 065
  5. AN UNKNOWN MEDICATION [Concomitant]
     Indication: SCHIZOPHRENIA
     Route: 065

REACTIONS (3)
  - SWOLLEN TONGUE [None]
  - PRODUCT QUALITY ISSUE [None]
  - MALAISE [None]
